FAERS Safety Report 18334671 (Version 1)
Quarter: 2020Q4

REPORT INFORMATION
  Report Type: Spontaneous
  Country: US (occurrence: US)
  Receive Date: 20201001
  Receipt Date: 20201001
  Transmission Date: 20210113
  Serious: Yes (Other)
  Sender: FDA-Public Use
  Company Number: None

PATIENT
  Age: 69 Year
  Sex: Female
  Weight: 69.75 kg

DRUGS (11)
  1. METOTOPROL [Concomitant]
  2. LIPITOR [Concomitant]
     Active Substance: ATORVASTATIN CALCIUM
  3. ELIQUIS [Concomitant]
     Active Substance: APIXABAN
  4. FISH OIL [Concomitant]
     Active Substance: FISH OIL
  5. VITAMIN D [Concomitant]
     Active Substance: VITAMIN D NOS
  6. CPAP MACIHNE [Concomitant]
     Active Substance: DEVICE
  7. ELIQUIS [Suspect]
     Active Substance: APIXABAN
     Indication: ATRIAL FIBRILLATION
     Dosage: ?          QUANTITY:1 TABLET(S);?
     Route: 048
     Dates: start: 20200214
  8. COUMADIN [Suspect]
     Active Substance: WARFARIN SODIUM
  9. SYMBICORT [Concomitant]
     Active Substance: BUDESONIDE\FORMOTEROL FUMARATE DIHYDRATE
  10. CALCIUM [Concomitant]
     Active Substance: CALCIUM
  11. CLEAR LUNGS [Concomitant]

REACTIONS (4)
  - Tendon pain [None]
  - Pain in extremity [None]
  - Peripheral swelling [None]
  - Tendon disorder [None]

NARRATIVE: CASE EVENT DATE: 20200301
